FAERS Safety Report 10059125 (Version 1)
Quarter: 2014Q2

REPORT INFORMATION
  Report Type: Spontaneous
  Country: US (occurrence: US)
  Receive Date: 20140404
  Receipt Date: 20140404
  Transmission Date: 20141212
  Serious: No
  Sender: FDA-Public Use
  Company Number: US-GLAXOSMITHKLINE-A1019408A

PATIENT
  Sex: Female

DRUGS (1)
  1. ALLI [Suspect]
     Indication: PRODUCT USED FOR UNKNOWN INDICATION
     Route: 048
     Dates: start: 20130317, end: 20130331

REACTIONS (4)
  - Faecal incontinence [Recovered/Resolved]
  - Diarrhoea [Unknown]
  - Abnormal faeces [Unknown]
  - Diarrhoea [Unknown]
